FAERS Safety Report 7396706-5 (Version None)
Quarter: 2011Q2

REPORT INFORMATION
  Report Type: 
  Country: None (occurrence: None)
  Receive Date: 20110406
  Receipt Date: 20110325
  Transmission Date: 20111010
  Serious: Yes (Hospitalization)
  Sender: FDA-Public Use
  Company Number: JP-ROCHE-709322

PATIENT
  Sex: Female
  Weight: 40 kg

DRUGS (54)
  1. TOCILIZUMAB [Suspect]
     Indication: JUVENILE ARTHRITIS
     Route: 041
     Dates: start: 20090818, end: 20100610
  2. TOCILIZUMAB [Suspect]
     Route: 041
     Dates: start: 20100716, end: 20100716
  3. PREDNISOLONE [Suspect]
     Route: 048
     Dates: start: 20090730, end: 20090826
  4. DEXAMETHASONE PALMITATE [Suspect]
     Route: 041
     Dates: start: 20100726, end: 20100731
  5. SANDIMMUNE [Suspect]
     Route: 041
     Dates: start: 20100617, end: 20100618
  6. SANDIMMUNE [Suspect]
     Route: 041
     Dates: start: 20100618, end: 20100619
  7. SANDIMMUNE [Suspect]
     Route: 041
     Dates: start: 20100718
  8. NEORAL [Suspect]
     Dosage: FORM: PER ORAL AGENT
     Route: 048
     Dates: start: 20100602, end: 20100602
  9. GLAKAY [Concomitant]
     Route: 048
     Dates: end: 20100602
  10. GLAKAY [Concomitant]
     Route: 048
     Dates: start: 20100607, end: 20100629
  11. PREDNISOLONE [Suspect]
     Route: 048
     Dates: start: 20100617, end: 20100629
  12. DEXAMETHASONE PALMITATE [Suspect]
     Route: 041
     Dates: start: 20100606, end: 20100607
  13. NEORAL [Suspect]
     Dosage: FORM: PER ORAL AGENT
     Route: 048
     Dates: start: 20100108, end: 20100204
  14. NEORAL [Suspect]
     Route: 048
     Dates: start: 20100605, end: 20100614
  15. ULCERLMIN [Concomitant]
     Route: 048
     Dates: start: 20090827, end: 20090928
  16. BIOFERMIN R [Concomitant]
     Route: 048
     Dates: start: 20090827, end: 20090928
  17. PREDNISOLONE [Suspect]
     Route: 048
     Dates: start: 20100627, end: 20100629
  18. DEXAMETHASONE PALMITATE [Suspect]
     Route: 041
     Dates: start: 20100602, end: 20100602
  19. DEXAMETHASONE PALMITATE [Suspect]
     Route: 041
     Dates: start: 20100603, end: 20100604
  20. SANDIMMUNE [Suspect]
     Route: 041
     Dates: start: 20100628, end: 20100629
  21. NEORAL [Suspect]
     Dosage: FORM: PER ORAL AGENT
     Route: 048
     Dates: start: 20100205, end: 20100304
  22. TRYPTANOL [Concomitant]
     Route: 048
     Dates: end: 20090826
  23. FAMOTIDINE [Concomitant]
     Dosage: DOSE FORM: PERORAL AGENT
     Route: 048
     Dates: start: 20100602, end: 20100629
  24. PREDNISOLONE [Suspect]
     Route: 048
     Dates: start: 20090702, end: 20090729
  25. DEXAMETHASONE PALMITATE [Suspect]
     Route: 041
     Dates: start: 20100605, end: 20100605
  26. DEXAMETHASONE PALMITATE [Suspect]
     Route: 041
     Dates: start: 20100629
  27. SANDIMMUNE [Suspect]
     Route: 041
     Dates: start: 20100602, end: 20100605
  28. SANDIMMUNE [Suspect]
     Route: 041
     Dates: start: 20100614, end: 20100617
  29. NEORAL [Suspect]
     Dosage: FORM: PER ORAL AGENT
     Route: 048
     Dates: start: 20100402, end: 20100429
  30. NEORAL [Suspect]
     Route: 048
     Dates: start: 20100619, end: 20100628
  31. BEZATOL SR [Concomitant]
     Dosage: FORM: SUSTAINED RELEASE TABLET
     Route: 048
     Dates: end: 20100602
  32. BIOFERMIN R [Concomitant]
     Indication: PROPHYLAXIS
     Dosage: FORM:PERORAL AGENT
     Route: 048
     Dates: end: 20090826
  33. TRYPTANOL [Concomitant]
     Dosage: DOSE FORM: PERORAL AGENT
     Route: 048
     Dates: start: 20090827, end: 20090928
  34. PREDNISOLONE [Suspect]
     Route: 048
     Dates: start: 20090924, end: 20100602
  35. DEXAMETHASONE PALMITATE [Suspect]
     Route: 041
     Dates: start: 20100718, end: 20100720
  36. NEORAL [Suspect]
     Dosage: FORM: PER ORAL AGENT
     Route: 048
     Dates: end: 20091112
  37. NEORAL [Suspect]
     Dosage: FORM: PER ORAL AGENT
     Route: 048
     Dates: start: 20091211, end: 20100107
  38. SELBEX [Concomitant]
     Route: 048
     Dates: start: 20100617, end: 20100629
  39. PREDNISOLONE [Suspect]
     Route: 048
     Dates: start: 20090512, end: 20090608
  40. PREDNISOLONE [Suspect]
     Route: 048
     Dates: start: 20090609, end: 20090701
  41. PREDNISOLONE [Suspect]
     Route: 048
     Dates: start: 20100731
  42. DEXAMETHASONE PALMITATE [Suspect]
     Route: 041
     Dates: start: 20100608, end: 20100610
  43. NEORAL [Suspect]
     Dosage: FORM: PER ORAL AGENT
     Route: 048
     Dates: start: 20091113, end: 20091210
  44. SOLU-MEDROL [Suspect]
     Route: 041
     Dates: start: 20100614, end: 20100616
  45. ULCERLMIN [Concomitant]
     Indication: PROPHYLAXIS
     Route: 048
     Dates: end: 20090826
  46. PREDNISOLONE [Suspect]
     Route: 048
     Dates: start: 20100723
  47. SOLU-MEDROL [Suspect]
     Route: 041
     Dates: start: 20100624, end: 20100626
  48. BIOFERMIN R [Concomitant]
     Route: 048
     Dates: start: 20100617, end: 20100629
  49. PREDNISOLONE [Suspect]
     Route: 048
     Dates: start: 20090827, end: 20090923
  50. DEXAMETHASONE PALMITATE [Suspect]
     Route: 041
     Dates: start: 20100721, end: 20100722
  51. NEORAL [Suspect]
     Dosage: FORM: PER ORAL AGENT
     Route: 048
     Dates: start: 20100305, end: 20100401
  52. NEORAL [Suspect]
     Dosage: FORM: PER ORAL AGENT
     Route: 048
     Dates: start: 20100430, end: 20100530
  53. NEORAL [Suspect]
     Dosage: FORM: PER ORAL AGENT
     Route: 048
     Dates: start: 20100531, end: 20100601
  54. BEZATOL SR [Concomitant]
     Dosage: FORM: SUSTAINED RELEASE TABLET
     Route: 048
     Dates: start: 20100607, end: 20100629

REACTIONS (3)
  - SEPSIS [None]
  - WHITE BLOOD CELL COUNT DECREASED [None]
  - HISTIOCYTOSIS HAEMATOPHAGIC [None]
